FAERS Safety Report 7112205-X (Version None)
Quarter: 2010Q4

REPORT INFORMATION
  Report Type: 
  Country: None (occurrence: None)
  Receive Date: 20101119
  Receipt Date: 20100304
  Transmission Date: 20110411
  Serious: No
  Sender: FDA-Public Use
  Company Number: A0848351A

PATIENT
  Sex: Male

DRUGS (3)
  1. AVODART [Suspect]
     Indication: BENIGN PROSTATIC HYPERPLASIA
     Route: 048
     Dates: start: 20080101
  2. UNSPECIFIED MEDICATION [Concomitant]
     Indication: PROSTATIC DISORDER
  3. OTHER MEDICATIONS [Concomitant]

REACTIONS (1)
  - VEIN DISORDER [None]
